FAERS Safety Report 5364034-5 (Version None)
Quarter: 2007Q2

REPORT INFORMATION
  Report Type: 
  Country: None (occurrence: None)
  Receive Date: 20070530
  Receipt Date: 20070108
  Transmission Date: 20071010
  Serious: No
  Sender: FDA-Public Use
  Company Number: 2007PV028073

PATIENT
  Age: 57 Year
  Sex: Female
  Weight: 121.564 kg

DRUGS (4)
  1. BYETTA [Suspect]
     Indication: DIABETES MELLITUS NON-INSULIN-DEPENDENT
     Dosage: 5 MCG; BID; SC, 5 MCG; BID; SC
     Route: 058
     Dates: start: 20061101, end: 20061101
  2. BYETTA [Suspect]
     Indication: DIABETES MELLITUS NON-INSULIN-DEPENDENT
     Dosage: 5 MCG; BID; SC, 5 MCG; BID; SC
     Route: 058
     Dates: start: 20061101
  3. METFORMIN HCL [Concomitant]
  4. GLUCOTROL [Concomitant]

REACTIONS (4)
  - DECREASED APPETITE [None]
  - INSOMNIA [None]
  - IRRITABILITY [None]
  - WEIGHT DECREASED [None]
